FAERS Safety Report 8356522-4 (Version None)
Quarter: 2012Q2

REPORT INFORMATION
  Report Type: 
  Country: None (occurrence: None)
  Receive Date: 20120514
  Receipt Date: 20120501
  Transmission Date: 20120825
  Serious: Yes (Hospitalization, Other)
  Sender: FDA-Public Use
  Company Number: US-SANOFI-AVENTIS-2012SA030741

PATIENT
  Sex: Female

DRUGS (15)
  1. ATENOLOL [Concomitant]
     Indication: SUPRAVENTRICULAR TACHYCARDIA
  2. LIPITOR [Suspect]
     Route: 048
     Dates: start: 20120301
  3. LIPITOR [Suspect]
     Route: 048
     Dates: start: 20120114, end: 20120301
  4. LASIX [Suspect]
     Indication: SWELLING
     Route: 048
     Dates: end: 20120116
  5. LASIX [Suspect]
     Route: 048
     Dates: end: 20120116
  6. ZESTRIL [Concomitant]
     Indication: BLOOD PRESSURE
  7. CYMBALTA [Concomitant]
  8. ALL OTHER THERAPEUTIC PRODUCTS [Concomitant]
  9. DIGOXIN [Concomitant]
     Indication: SUPRAVENTRICULAR TACHYCARDIA
  10. LASIX [Suspect]
     Route: 048
     Dates: start: 20120301
  11. LASIX [Suspect]
     Route: 048
     Dates: start: 20120301
  12. LIPITOR [Suspect]
     Route: 048
     Dates: start: 20110101, end: 20120113
  13. HMG COA REDUCTASE INHIBITORS [Concomitant]
  14. ASPIRIN [Concomitant]
  15. INSULIN [Concomitant]
     Indication: TYPE 2 DIABETES MELLITUS
     Dosage: DOSE:100 UNIT(S)

REACTIONS (14)
  - CARDIAC FAILURE CONGESTIVE [None]
  - MEDICATION ERROR [None]
  - DYSPNOEA [None]
  - BRONCHITIS [None]
  - MUSCULAR WEAKNESS [None]
  - ARTHRALGIA [None]
  - ANAEMIA [None]
  - GAIT DISTURBANCE [None]
  - WEIGHT INCREASED [None]
  - CHEST PAIN [None]
  - MYALGIA [None]
  - HEPATIC ENZYME ABNORMAL [None]
  - DYSSTASIA [None]
  - ACTIVITIES OF DAILY LIVING IMPAIRED [None]
